FAERS Safety Report 11973007 (Version 2)
Quarter: 2016Q2

REPORT INFORMATION
  Report Type: Report from Study
  Country: US (occurrence: US)
  Receive Date: 20160128
  Receipt Date: 20160421
  Transmission Date: 20160815
  Serious: No
  Sender: FDA-Public Use
  Company Number: US-AMGEN-USASL2016004700

PATIENT
  Age: 47 Year
  Sex: Female

DRUGS (2)
  1. BACTROBAN [Concomitant]
     Active Substance: MUPIROCIN\MUPIROCIN CALCIUM
     Indication: NASAL ULCER
     Dosage: UNK
  2. REPATHA [Suspect]
     Active Substance: EVOLOCUMAB
     Indication: HYPERCHOLESTEROLAEMIA
     Dosage: 140 MG/ML, Q2WK
     Route: 065

REACTIONS (7)
  - Injection site bruising [Unknown]
  - Antinuclear antibody positive [Unknown]
  - Injection site pain [Unknown]
  - Device issue [Unknown]
  - Fatigue [Unknown]
  - Pain [Unknown]
  - Injection site extravasation [Unknown]

NARRATIVE: CASE EVENT DATE: 201512
